FAERS Safety Report 15075563 (Version 1)
Quarter: 2018Q2

REPORT INFORMATION
  Report Type: Spontaneous
  Country: US (occurrence: US)
  Receive Date: 20180627
  Receipt Date: 20180627
  Transmission Date: 20180711
  Serious: Yes (Life-Threatening, Other)
  Sender: FDA-Public Use
  Company Number: US-ROCHE-2144892

PATIENT
  Age: 38 Year
  Sex: Male

DRUGS (2)
  1. HEPARIN [Concomitant]
     Active Substance: HEPARIN SODIUM
  2. ACTILYSE [Suspect]
     Active Substance: ALTEPLASE
     Indication: PULMONARY EMBOLISM
     Dosage: 12 HR ALTEPLASE INFUSION AT A RATE OF 1MG/HR
     Route: 040

REACTIONS (9)
  - Rib fracture [Unknown]
  - Acute respiratory distress syndrome [Unknown]
  - Haemorrhagic transformation stroke [Unknown]
  - Cardiac arrest [Unknown]
  - Chest wall haematoma [Unknown]
  - Haemothorax [Unknown]
  - Pneumonia pneumococcal [Unknown]
  - Arterial injury [Unknown]
  - Anaemia [Unknown]
